FAERS Safety Report 4788175-6 (Version None)
Quarter: 2005Q3

REPORT INFORMATION
  Report Type: 
  Country: None (occurrence: None)
  Receive Date: 20050920
  Receipt Date: 20040721
  Transmission Date: 20060218
  Serious: Yes (Other)
  Sender: FDA-Public Use
  Company Number: PHEH2004US07941

PATIENT
  Age: 79 Year
  Sex: Female

DRUGS (7)
  1. DIOVAN [Suspect]
     Indication: HYPERTENSION
     Dosage: 320 MG, QD, ORAL; SEE IMAGE
     Route: 048
     Dates: start: 20020101, end: 20040714
  2. DIOVAN [Suspect]
     Indication: HYPERTENSION
     Dosage: 320 MG, QD, ORAL; SEE IMAGE
     Route: 048
     Dates: start: 20040715
  3. CALCIUM (CALCIUM) [Concomitant]
  4. VITAMIN E [Concomitant]
  5. ASPIRIN [Concomitant]
  6. M.V.I. (ASCORBIC ACID, DEXPANTHENOL, ERGOCALCIFEROL, NICOTINAMIDE, PYR [Concomitant]
  7. METAMUCIL-2 [Concomitant]

REACTIONS (1)
  - BLOOD PRESSURE INCREASED [None]
